FAERS Safety Report 8301029-3 (Version None)
Quarter: 2012Q2

REPORT INFORMATION
  Report Type: 
  Country: None (occurrence: None)
  Receive Date: 20120420
  Receipt Date: 20120412
  Transmission Date: 20120825
  Serious: Yes (Hospitalization, Other)
  Sender: FDA-Public Use
  Company Number: US-BAYER-2012-011430

PATIENT
  Age: 25 Year
  Sex: Female
  Weight: 71.655 kg

DRUGS (15)
  1. GI COCKTAIL [Concomitant]
     Dosage: UNK
     Dates: start: 20100125
  2. RELPAX [Concomitant]
  3. METOPROLOL TARTRATE [Concomitant]
     Dosage: UNK
     Dates: start: 20100210
  4. GEODON [Concomitant]
     Dosage: UNK
     Dates: start: 20110101
  5. YAZ [Suspect]
     Dosage: UNK
     Dates: start: 20070901, end: 20100401
  6. METOPROLOL TARTRATE [Concomitant]
     Indication: TACHYCARDIA
     Dosage: UNK
     Dates: start: 20081201, end: 20100701
  7. TREXIMET [Concomitant]
     Dosage: UNK
     Dates: start: 20080101
  8. NSAID'S [Concomitant]
  9. GEODON [Concomitant]
     Dosage: UNK
     Dates: start: 20080101, end: 20090101
  10. WELLBUTRIN [Concomitant]
     Dosage: UNK
     Dates: start: 20070101
  11. VICODIN [Concomitant]
     Dosage: UNK
     Dates: start: 20100125
  12. RISPERIDONE [Concomitant]
     Dosage: UNK
     Dates: start: 20090101, end: 20110101
  13. MIDRIN [Concomitant]
  14. BUPROPION HCL [Concomitant]
     Dosage: UNK
     Dates: start: 20070101
  15. MAXALT [Concomitant]
     Dosage: UNK
     Dates: start: 20080101

REACTIONS (3)
  - PAIN [None]
  - CHOLECYSTITIS CHRONIC [None]
  - CHOLELITHIASIS [None]
